FAERS Safety Report 22167423 (Version 2)
Quarter: 2025Q3

REPORT INFORMATION
  Report Type: Spontaneous
  Country: US (occurrence: US)
  Receive Date: 20230403
  Receipt Date: 20250901
  Transmission Date: 20251021
  Serious: No
  Sender: SANOFI AVENTIS
  Company Number: US-SA-SAC20230330000710

PATIENT
  Sex: Female
  Weight: 58 kg

DRUGS (10)
  1. DUPIXENT [Suspect]
     Active Substance: DUPILUMAB
     Indication: Dermatitis atopic
     Dosage: 300 MG, QOW
     Route: 058
     Dates: start: 20250729
  2. POMALYST [Suspect]
     Active Substance: POMALIDOMIDE
  3. GRANIX [Concomitant]
     Active Substance: TBO-FILGRASTIM
  4. NEUPOGEN [Concomitant]
     Active Substance: FILGRASTIM
  5. VITAMINS [Concomitant]
     Active Substance: VITAMINS
  6. OMEPRAZOLE [Concomitant]
     Active Substance: OMEPRAZOLE
  7. POMALYST [Concomitant]
     Active Substance: POMALIDOMIDE
  8. ACYCLOVIR [Concomitant]
     Active Substance: ACYCLOVIR
  9. DEXAMETHASONE [Concomitant]
     Active Substance: DEXAMETHASONE
  10. DARZALEX [Concomitant]
     Active Substance: DARATUMUMAB

REACTIONS (3)
  - Fatigue [Not Recovered/Not Resolved]
  - Constipation [Not Recovered/Not Resolved]
  - Diarrhoea [Not Recovered/Not Resolved]
